FAERS Safety Report 25505596 (Version 1)
Quarter: 2025Q3

REPORT INFORMATION
  Report Type: Spontaneous
  Country: US (occurrence: None)
  Receive Date: 20250702
  Receipt Date: 20250702
  Transmission Date: 20251021
  Serious: Yes (Disabling, Other)
  Sender: FDA-CTU
  Company Number: None

PATIENT
  Age: 66 Year
  Sex: Female
  Weight: 101.25 kg

DRUGS (1)
  1. POLYETHYLENE GLYCOL 3350 [Suspect]
     Active Substance: POLYETHYLENE GLYCOL 3350
     Indication: Constipation
     Dates: start: 20180801, end: 20210615

REACTIONS (15)
  - Nervous system disorder [None]
  - Nausea [None]
  - Abdominal pain upper [None]
  - Diarrhoea [None]
  - Weight decreased [None]
  - Feeling abnormal [None]
  - Suicidal ideation [None]
  - Head discomfort [None]
  - Hypoaesthesia [None]
  - Hypoaesthesia [None]
  - Tinnitus [None]
  - Pain of skin [None]
  - Tremor [None]
  - Gastrointestinal disorder [None]
  - Cardiovascular disorder [None]

NARRATIVE: CASE EVENT DATE: 20201201
